FAERS Safety Report 9364133 (Version 2)
Quarter: 2013Q3

REPORT INFORMATION
  Report Type: Spontaneous
  Country: DE (occurrence: DE)
  Receive Date: 20130624
  Receipt Date: 20130926
  Transmission Date: 20140515
  Serious: Yes (Hospitalization, Other)
  Sender: FDA-Public Use
  Company Number: DE-JNJFOC-20130612663

PATIENT
  Age: 55 Year
  Sex: Female
  Weight: 115 kg

DRUGS (11)
  1. XARELTO [Suspect]
     Indication: THROMBOSIS PROPHYLAXIS
     Route: 048
     Dates: start: 201212, end: 20130612
  2. XARELTO [Suspect]
     Indication: PULMONARY EMBOLISM
     Route: 048
     Dates: start: 201212, end: 20130612
  3. METHOTREXAT [Suspect]
     Indication: PRODUCT USED FOR UNKNOWN INDICATION
     Route: 065
  4. LISINOPRIL [Concomitant]
     Route: 065
  5. TOREM [Concomitant]
     Route: 065
  6. SIMVASTATIN [Concomitant]
     Route: 065
  7. SPIRIVA [Concomitant]
     Route: 065
  8. LEVEMIR [Concomitant]
     Dosage: 20-0-22
     Route: 065
  9. DORZOLAMIDE [Concomitant]
     Route: 065
  10. SYMBICORT [Concomitant]
     Route: 065
  11. PANTOZOL [Concomitant]
     Route: 065

REACTIONS (2)
  - Pancytopenia [Unknown]
  - Overdose [Unknown]
